FAERS Safety Report 10060631 (Version 1)
Quarter: 2014Q2

REPORT INFORMATION
  Report Type: Report from Study
  Country: US (occurrence: US)
  Receive Date: 20140404
  Receipt Date: 20140404
  Transmission Date: 20141212
  Serious: Yes (Death, Other)
  Sender: FDA-Public Use
  Company Number: US-MPIJNJ-2014MPI001011

PATIENT
  Age: 63 Year
  Sex: Female
  Weight: 68.9 kg

DRUGS (3)
  1. VELCADE [Suspect]
     Indication: PLASMA CELL MYELOMA
     Dosage: UNK
     Dates: start: 20140314, end: 20140323
  2. DEXAMETHASONE [Suspect]
     Indication: PLASMA CELL MYELOMA
  3. LENALIDOMIDE [Suspect]
     Indication: PLASMA CELL MYELOMA

REACTIONS (3)
  - Cardiomyopathy [Fatal]
  - Sepsis [Fatal]
  - Respiratory failure [Fatal]
